FAERS Safety Report 15256990 (Version 1)
Quarter: 2018Q3

REPORT INFORMATION
  Report Type: Spontaneous
  Country: US (occurrence: US)
  Receive Date: 20180808
  Receipt Date: 20180808
  Transmission Date: 20181010
  Serious: No
  Sender: FDA-Public Use
  Company Number: US-NOVAST LABORATORIES, LTD-US-2017NOV000034

PATIENT

DRUGS (1)
  1. TRI?LINYAH [Suspect]
     Active Substance: ETHINYL ESTRADIOL\NORGESTIMATE
     Indication: MIGRAINE PROPHYLAXIS
     Dosage: UNK
     Route: 048
     Dates: start: 201706

REACTIONS (4)
  - Off label use [Unknown]
  - Dry skin [Unknown]
  - Gluten sensitivity [Unknown]
  - Skin exfoliation [Unknown]

NARRATIVE: CASE EVENT DATE: 201706
